FAERS Safety Report 15333574 (Version 1)
Quarter: 2018Q3

REPORT INFORMATION
  Report Type: Spontaneous
  Country: ES (occurrence: ES)
  Receive Date: 20180830
  Receipt Date: 20180830
  Transmission Date: 20181010
  Serious: Yes (Death)
  Sender: FDA-Public Use
  Company Number: ES-BAYER-2018-158369

PATIENT
  Age: 84 Year
  Sex: Male

DRUGS (14)
  1. FUROSEMIDA [Concomitant]
     Active Substance: FUROSEMIDE
     Dosage: UNK
  2. ACLIDINIUM BROMIDE. [Concomitant]
     Active Substance: ACLIDINIUM BROMIDE
  3. SIMVASTATIN. [Concomitant]
     Active Substance: SIMVASTATIN
  4. BOREA [Concomitant]
     Active Substance: MEGESTROL ACETATE
  5. LANIRAPID [Concomitant]
     Active Substance: METILDIGOXIN
  6. EUTIROX [Concomitant]
     Active Substance: LEVOTHYROXINE SODIUM
  7. IRON SUCCINYL?PROTEIN COMPLEX [Concomitant]
  8. LORAZEPAM. [Concomitant]
     Active Substance: LORAZEPAM
  9. ALDOCUMAR [Suspect]
     Active Substance: WARFARIN SODIUM
     Indication: ARRHYTHMIA
     Dosage: 2.5 MG, QD
     Route: 048
     Dates: start: 20160915, end: 20180423
  10. PANTOPRAZOLE [Concomitant]
     Active Substance: PANTOPRAZOLE
  11. ALOPURINOL [Concomitant]
     Active Substance: ALLOPURINOL
  12. ACETYLSALICYLIC ACID({=100 MG) [Suspect]
     Active Substance: ASPIRIN
     Indication: ACUTE CORONARY SYNDROME
     Dosage: 100 MG, QD
     Route: 048
     Dates: start: 20171101, end: 20180423
  13. RELVAR ELLIPTA [Concomitant]
     Active Substance: FLUTICASONE FUROATE\VILANTEROL TRIFENATATE
     Dosage: 92MCG/22MCG
  14. PARACETAMOL [Concomitant]
     Active Substance: ACETAMINOPHEN

REACTIONS (3)
  - Atrial fibrillation [Fatal]
  - Cardiac failure chronic [Fatal]
  - Anaemia [Fatal]

NARRATIVE: CASE EVENT DATE: 20180423
